FAERS Safety Report 20339547 (Version 1)
Quarter: 2022Q1

REPORT INFORMATION
  Report Type: Spontaneous
  Country: NL (occurrence: NL)
  Receive Date: 20220117
  Receipt Date: 20220117
  Transmission Date: 20220424
  Serious: Yes (Life-Threatening)
  Sender: FDA-Public Use
  Company Number: NL-LRB-00729313

PATIENT
  Age: 67 Year
  Sex: Male
  Weight: 77 kg

DRUGS (4)
  1. GEMCITABINE [Suspect]
     Active Substance: GEMCITABINE
     Indication: Cholangiocarcinoma
     Dosage: 1920 MILLIGRAM, UNK, 1X PER DAY 1920MG IV
     Route: 065
     Dates: start: 20211201
  2. VERAPAMIL TABLET 120MG / Brand name not specifiedVERAPAMIL TABLET 1... [Concomitant]
     Indication: Product used for unknown indication
     Dosage: TABLET, 120 MG (MILLIGRAM) ()
     Route: 065
  3. RIVAROXABAN TABLET 20MG / Brand name not specifiedRIVAROXABAN TABLE... [Concomitant]
     Indication: Product used for unknown indication
     Dosage: TABLET, 20 MG (MILLIGRAM) ()
     Route: 065
  4. CISPLATINE INFOPL CONC 1MG/ML / Brand name not specifiedCISPLATINE ... [Concomitant]
     Indication: Product used for unknown indication
     Dosage: 48MG IV
     Route: 065

REACTIONS (1)
  - Hepatic encephalopathy [Recovering/Resolving]

NARRATIVE: CASE EVENT DATE: 20211205
